FAERS Safety Report 7270366-6 (Version None)
Quarter: 2011Q1

REPORT INFORMATION
  Report Type: 
  Country: None (occurrence: None)
  Receive Date: 20110202
  Receipt Date: 20100928
  Transmission Date: 20110831
  Serious: Yes (Hospitalization, Other)
  Sender: FDA-Public Use
  Company Number: US-BAYER-201028176NA

PATIENT
  Sex: Female
  Weight: 53.515 kg

DRUGS (6)
  1. TOPAMAX [Concomitant]
     Dosage: 50 MG, BID
     Dates: start: 20080307
  2. UNCODEABLE ^UNCLASSIFIABLE^ [Concomitant]
  3. PRIMACARE [Concomitant]
  4. VERAPAMIL [Concomitant]
     Dosage: 200 MG, QD
     Dates: start: 20080201, end: 20080101
  5. DIAZEPAM [Concomitant]
     Dosage: 5 MG, UNK
     Dates: start: 20080326
  6. YAZ [Suspect]
     Indication: CONTRACEPTION
     Route: 048
     Dates: start: 20071201, end: 20080713

REACTIONS (10)
  - CAROTID ARTERY THROMBOSIS [None]
  - CEREBRAL INFARCTION [None]
  - CEREBROVASCULAR ACCIDENT [None]
  - HEMIPARESIS [None]
  - BRAIN OEDEMA [None]
  - SPEECH DISORDER [None]
  - HYPOKALAEMIA [None]
  - CEREBRAL HAEMORRHAGE [None]
  - DEEP VEIN THROMBOSIS [None]
  - MENTAL STATUS CHANGES [None]
